FAERS Safety Report 6595708-6 (Version None)
Quarter: 2010Q1

REPORT INFORMATION
  Report Type: 
  Country: None (occurrence: None)
  Receive Date: 20100222
  Receipt Date: 20100222
  Transmission Date: 20100710
  Serious: Yes (Disabling)
  Sender: FDA-Public Use
  Company Number: None

PATIENT
  Age: 62 Year
  Sex: Male
  Weight: 95.2554 kg

DRUGS (1)
  1. LEVAQUIN [Suspect]
     Indication: SINUSITIS
     Dosage: 500 MG 1/DAY 10 DAYS ORAL
     Route: 048
     Dates: start: 20090930, end: 20091009

REACTIONS (3)
  - INJURY [None]
  - TENDON RUPTURE [None]
  - TENDONITIS [None]
